FAERS Safety Report 15491301 (Version 2)
Quarter: 2018Q4

REPORT INFORMATION
  Report Type: Spontaneous
  Country: US (occurrence: US)
  Receive Date: 20181012
  Receipt Date: 20181105
  Transmission Date: 20190205
  Serious: Yes (Other)
  Sender: FDA-Public Use
  Company Number: US-ROCHE-2196788

PATIENT
  Age: 50 Year
  Sex: Male
  Weight: 75.5 kg

DRUGS (5)
  1. OCREVUS [Suspect]
     Active Substance: OCRELIZUMAB
     Indication: MULTIPLE SCLEROSIS
     Route: 042
     Dates: start: 20180817
  2. OCREVUS [Suspect]
     Active Substance: OCRELIZUMAB
     Dosage: SECOND HALF DOSE
     Route: 042
     Dates: start: 20180831
  3. SYMMETREL [Concomitant]
     Active Substance: AMANTADINE HYDROCHLORIDE
     Dosage: ONGOING:UNKNOWN
     Route: 065
  4. AMPYRA [Concomitant]
     Active Substance: DALFAMPRIDINE
     Indication: MULTIPLE SCLEROSIS
     Dosage: ONGOING:UNKNOWN
     Route: 065
     Dates: start: 20181003
  5. PROZAC [Concomitant]
     Active Substance: FLUOXETINE HYDROCHLORIDE
     Dosage: ONGOING:UNKNOWN
     Route: 065

REACTIONS (3)
  - Pain in extremity [Unknown]
  - Herpes zoster [Recovered/Resolved]
  - Herpes zoster [Unknown]

NARRATIVE: CASE EVENT DATE: 20180820
